FAERS Safety Report 18172379 (Version 1)
Quarter: 2020Q3

REPORT INFORMATION
  Report Type: Report from Study
  Country: US (occurrence: US)
  Receive Date: 20200820
  Receipt Date: 20200820
  Transmission Date: 20201103
  Serious: Yes (Death, Hospitalization)
  Sender: FDA-Public Use
  Company Number: US-EMD SERONO-E2B_90038617

PATIENT
  Sex: Female

DRUGS (2)
  1. OXYGEN. [Concomitant]
     Active Substance: OXYGEN
     Indication: LUNG DISORDER
  2. REBIF [Suspect]
     Active Substance: INTERFERON BETA-1A
     Indication: PRODUCT USED FOR UNKNOWN INDICATION
     Route: 058
     Dates: start: 20161013

REACTIONS (6)
  - Fatigue [Not Recovered/Not Resolved]
  - Confusional state [Unknown]
  - Dyspnoea exertional [Not Recovered/Not Resolved]
  - Carbon dioxide increased [Fatal]
  - Thrombosis [Fatal]
  - Injection site erythema [Recovering/Resolving]
